FAERS Safety Report 4866782-X (Version None)
Quarter: 2005Q4

REPORT INFORMATION
  Report Type: 
  Country: None (occurrence: None)
  Receive Date: 20051221
  Receipt Date: 20051207
  Transmission Date: 20060501
  Serious: Yes (Hospitalization)
  Sender: FDA-Public Use
  Company Number: PHHO2005JP19300

PATIENT
  Age: 76 Year
  Sex: Female
  Weight: 47.9906 kg

DRUGS (1)
  1. VISUDYNE [Suspect]
     Indication: MACULAR DEGENERATION
     Dosage: 6 MG/M^2 ONCE IV
     Route: 042
     Dates: start: 20050224, end: 20050224

REACTIONS (2)
  - POST PROCEDURAL COMPLICATION [None]
  - SUBARACHNOID HAEMORRHAGE [None]
